FAERS Safety Report 13915129 (Version 1)
Quarter: 2017Q3

REPORT INFORMATION
  Report Type: Report from Study
  Country: AT (occurrence: AT)
  Receive Date: 20170829
  Receipt Date: 20170829
  Transmission Date: 20171127
  Serious: Yes (Death)
  Sender: FDA-Public Use
  Company Number: AT-ROCHE-1985593

PATIENT

DRUGS (1)
  1. ALTEPLASE. [Suspect]
     Active Substance: ALTEPLASE
     Indication: THROMBOSIS IN DEVICE
     Route: 042

REACTIONS (2)
  - Myocardial infarction [Fatal]
  - Ventricular fibrillation [Fatal]
